FAERS Safety Report 6322075-5 (Version None)
Quarter: 2009Q3

REPORT INFORMATION
  Report Type: 
  Country: None (occurrence: None)
  Receive Date: 20090821
  Receipt Date: 20090821
  Transmission Date: 20100115
  Serious: Yes (Hospitalization, Other)
  Sender: FDA-Public Use
  Company Number: None

PATIENT
  Age: 45 Year
  Sex: Male
  Weight: 102.5 kg

DRUGS (11)
  1. EFFIENT [Suspect]
     Indication: PROPHYLAXIS
     Dosage: 10 MG ONCE DAILY PO
     Route: 048
     Dates: start: 20090816, end: 20090817
  2. EFFIENT [Suspect]
     Indication: STENT OCCLUSION
     Dosage: 10 MG ONCE DAILY PO
     Route: 048
     Dates: start: 20090816, end: 20090817
  3. ASPIRIN [Concomitant]
  4. CARVEDILOL [Concomitant]
  5. DIGOXIN [Concomitant]
  6. LANTUS [Concomitant]
  7. PAROXETINE HCL [Concomitant]
  8. SIMVASTATIN [Concomitant]
  9. CALCIUM ACETATE [Concomitant]
  10. CLONAZEPAM [Concomitant]
  11. ENALAPRIL MALEATE [Concomitant]

REACTIONS (1)
  - RASH [None]
